FAERS Safety Report 17724682 (Version 2)
Quarter: 2020Q2

REPORT INFORMATION
  Report Type: Spontaneous
  Country: US (occurrence: US)
  Receive Date: 20200429
  Receipt Date: 20200501
  Transmission Date: 20200714
  Serious: Yes (Other)
  Sender: FDA-Public Use
  Company Number: US-ASTRAZENECA-2020SE57308

PATIENT
  Age: 863 Month
  Sex: Female
  Weight: 56.2 kg

DRUGS (6)
  1. IBRANCE [Suspect]
     Active Substance: PALBOCICLIB
     Indication: BREAST CANCER STAGE IV
     Dosage: ONE CAPSULE FOR 21 DAYS BY MOUTH THEN TAKE 1 WEEK OFF.
     Route: 048
     Dates: start: 201908
  2. ARIMIDEX [Suspect]
     Active Substance: ANASTROZOLE
     Route: 048
     Dates: start: 2014, end: 2018
  3. FASLODEX [Suspect]
     Active Substance: FULVESTRANT
     Indication: ILL-DEFINED DISORDER
     Dosage: 250 MG IN 5 CC AND SHE RECEIVES 2 AT A TIME
     Route: 030
     Dates: start: 20190826
  4. RECLAST [Concomitant]
     Active Substance: ZOLEDRONIC ACID
     Indication: BONE LOSS
     Dosage: EVERY 3-4 MONTHS
     Route: 042
     Dates: start: 20190925
  5. AROMASIN [Suspect]
     Active Substance: EXEMESTANE
     Route: 065
     Dates: start: 2014, end: 2014
  6. AVASTIN [Concomitant]
     Active Substance: BEVACIZUMAB

REACTIONS (12)
  - Metastases to eye [Recovered/Resolved]
  - Retinopathy [Not Recovered/Not Resolved]
  - Metastases to bone [Unknown]
  - Coronavirus infection [Unknown]
  - Bone pain [Recovered/Resolved]
  - Pneumonia [Unknown]
  - Retinal vein occlusion [Not Recovered/Not Resolved]
  - Bone loss [Unknown]
  - White blood cell count decreased [Unknown]
  - Sciatica [Unknown]
  - Metastases to pelvis [Unknown]
  - Disease progression [Unknown]

NARRATIVE: CASE EVENT DATE: 201903
